FAERS Safety Report 6604168-8 (Version None)
Quarter: 2010Q1

REPORT INFORMATION
  Report Type: 
  Country: None (occurrence: None)
  Receive Date: 20100226
  Receipt Date: 20090722
  Transmission Date: 20100710
  Serious: Yes (Hospitalization, Disabling, Other)
  Sender: FDA-Public Use
  Company Number: A0792037A

PATIENT
  Age: 29 Year
  Sex: Male

DRUGS (4)
  1. LAMICTAL CD [Suspect]
     Indication: BIPOLAR DISORDER
     Route: 048
     Dates: start: 20090114
  2. LOVAZA [Concomitant]
  3. VITAMIN B6 [Concomitant]
  4. BACTRIM [Concomitant]

REACTIONS (4)
  - ERYTHEMA [None]
  - HEPATIC ENZYME INCREASED [None]
  - RASH [None]
  - STAPHYLOCOCCAL INFECTION [None]
